FAERS Safety Report 5780161-2 (Version None)
Quarter: 2008Q2

REPORT INFORMATION
  Report Type: 
  Country: None (occurrence: None)
  Receive Date: 20080620
  Receipt Date: 20080611
  Transmission Date: 20081010
  Serious: Yes (Other)
  Sender: FDA-Public Use
  Company Number: FR-ASTRAZENECA-2008CG00920

PATIENT
  Age: 20 Year
  Sex: Male
  Weight: 68 kg

DRUGS (1)
  1. SYMBICORT [Suspect]
     Dosage: 160/4.5 UG PER DOSE, 6O INHALATIONS APPROXIMATELY
     Route: 055
     Dates: start: 20080414

REACTIONS (4)
  - ACCIDENTAL OVERDOSE [None]
  - DEVICE MISUSE [None]
  - HYPERTENSION [None]
  - TACHYCARDIA [None]
